FAERS Safety Report 9339190 (Version 1)
Quarter: 2013Q2

REPORT INFORMATION
  Report Type: Spontaneous
  Country: US (occurrence: None)
  Receive Date: 20130606
  Receipt Date: 20130606
  Transmission Date: 20140414
  Serious: No
  Sender: FDA-Public Use
  Company Number: None

PATIENT
  Sex: Female

DRUGS (1)
  1. ENBREL [Suspect]
     Route: 058
     Dates: start: 20130408

REACTIONS (10)
  - Mood altered [None]
  - Memory impairment [None]
  - Nervousness [None]
  - Depression [None]
  - Myalgia [None]
  - Vomiting [None]
  - Nausea [None]
  - Application site pruritus [None]
  - Contusion [None]
  - Dry mouth [None]
